FAERS Safety Report 9066750 (Version 2)
Quarter: 2013Q1

REPORT INFORMATION
  Report Type: Spontaneous
  Country: CA (occurrence: CA)
  Receive Date: 20130214
  Receipt Date: 20130326
  Transmission Date: 20140127
  Serious: Yes (Hospitalization)
  Sender: FDA-Public Use
  Company Number: CA-GLAXOSMITHKLINE-A1010999A

PATIENT
  Age: 31 None
  Sex: Female
  Weight: 100 kg

DRUGS (1)
  1. REVOLADE [Suspect]
     Indication: IDIOPATHIC THROMBOCYTOPENIC PURPURA
     Dosage: 50MG PER DAY
     Route: 048
     Dates: start: 20130101, end: 20130308

REACTIONS (3)
  - Pulmonary thrombosis [Recovered/Resolved]
  - Cerebrovascular accident [Recovered/Resolved]
  - Adverse event [Recovered/Resolved]
